FAERS Safety Report 4908888-2 (Version None)
Quarter: 2006Q1

REPORT INFORMATION
  Report Type: 
  Country: None (occurrence: None)
  Receive Date: 20060210
  Receipt Date: 20030325
  Transmission Date: 20060701
  Serious: Yes (Life-Threatening, Hospitalization)
  Sender: FDA-Public Use
  Company Number: PHBS2003JP03347

PATIENT
  Age: 71 Year
  Sex: Female

DRUGS (4)
  1. VOLTAREN [Suspect]
     Indication: PYREXIA
     Dosage: 75 MG/DAY
     Route: 048
     Dates: start: 20030317, end: 20030318
  2. DIOVAN [Suspect]
     Indication: HYPERTENSION
     Dosage: 80 MG/DAY
     Route: 048
     Dates: start: 20030304, end: 20030316
  3. URSO [Suspect]
     Indication: HEPATITIS C
     Dosage: 300 MG/DAY
     Route: 048
     Dates: start: 20030121, end: 20030317
  4. ZYRTEC [Concomitant]
     Indication: DRUG ERUPTION
     Dosage: 20 MG/DAY
     Route: 048
     Dates: start: 20030317, end: 20030318

REACTIONS (9)
  - BLOOD POTASSIUM DECREASED [None]
  - DISSEMINATED INTRAVASCULAR COAGULATION [None]
  - ERYTHEMA MULTIFORME [None]
  - GENERALISED OEDEMA [None]
  - HYPOTENSION [None]
  - PLATELET COUNT DECREASED [None]
  - PYREXIA [None]
  - RASH GENERALISED [None]
  - SHOCK [None]
